FAERS Safety Report 6187976-X (Version None)
Quarter: 2009Q2

REPORT INFORMATION
  Report Type: 
  Country: None (occurrence: None)
  Receive Date: 20090511
  Receipt Date: 20090511
  Transmission Date: 20091009
  Serious: Yes (Other)
  Sender: FDA-Public Use
  Company Number: None

PATIENT
  Age: 46 Year
  Sex: Male
  Weight: 83.9154 kg

DRUGS (7)
  1. LAMOTRIGINE [Suspect]
     Indication: ANXIETY
     Dosage: 200 MG TWICE DAILY PO
     Route: 048
  2. LAMOTRIGINE [Suspect]
     Indication: DEPRESSION
     Dosage: 200 MG TWICE DAILY PO
     Route: 048
  3. LAMOTRIGINE [Suspect]
     Indication: EPILEPSY
     Dosage: 200 MG TWICE DAILY PO
     Route: 048
  4. LAMOTRIGINE [Suspect]
     Indication: MENTAL DISORDER
     Dosage: 200 MG TWICE DAILY PO
     Route: 048
  5. CLONAZEPAM [Concomitant]
  6. CYMBALTA [Concomitant]
  7. VYVANSE [Concomitant]

REACTIONS (7)
  - ABNORMAL DREAMS [None]
  - ANXIETY [None]
  - DAYDREAMING [None]
  - DEPRESSION [None]
  - DRUG EFFECT DECREASED [None]
  - EPILEPTIC AURA [None]
  - PRODUCT SUBSTITUTION ISSUE [None]
